FAERS Safety Report 13421956 (Version 2)
Quarter: 2017Q2

REPORT INFORMATION
  Report Type: Spontaneous
  Country: US (occurrence: US)
  Receive Date: 20170410
  Receipt Date: 20170502
  Transmission Date: 20170830
  Serious: No
  Sender: FDA-Public Use
  Company Number: US-PFIZER INC-2017156045

PATIENT
  Age: 58 Year
  Sex: Male

DRUGS (1)
  1. VIAGRA [Suspect]
     Active Substance: SILDENAFIL CITRATE
     Indication: ERECTILE DYSFUNCTION
     Dosage: 20 MG, X1
     Dates: start: 200607, end: 200608

REACTIONS (2)
  - Cyanopsia [Unknown]
  - Drug ineffective [Unknown]

NARRATIVE: CASE EVENT DATE: 200607
